FAERS Safety Report 8234159-5 (Version None)
Quarter: 2012Q1

REPORT INFORMATION
  Report Type: 
  Country: None (occurrence: None)
  Receive Date: 20120326
  Receipt Date: 20120322
  Transmission Date: 20120608
  Serious: Yes (Hospitalization)
  Sender: FDA-Public Use
  Company Number: JP-BAYER-2012-028261

PATIENT
  Age: 73 Year
  Sex: Male

DRUGS (4)
  1. WARFARIN SODIUM [Concomitant]
     Dosage: UNK
     Route: 048
  2. NEXAVAR [Suspect]
     Indication: HEPATIC NEOPLASM MALIGNANT
     Dosage: 200 MG, BID
     Route: 048
     Dates: start: 20120308, end: 20120314
  3. ASPIRIN [Concomitant]
     Dosage: UNK
     Route: 048
  4. NEXAVAR [Suspect]
     Dosage: 400 MG, BID
     Route: 048
     Dates: start: 20120315, end: 20120321

REACTIONS (1)
  - HENOCH-SCHONLEIN PURPURA [None]
